FAERS Safety Report 17847022 (Version 1)
Quarter: 2020Q2

REPORT INFORMATION
  Report Type: Spontaneous
  Country: US (occurrence: US)
  Receive Date: 20200601
  Receipt Date: 20200601
  Transmission Date: 20200714
  Serious: Yes (Other)
  Sender: FDA-Public Use
  Company Number: US-PFIZER INC-2020211569

PATIENT
  Age: 72 Year
  Sex: Male
  Weight: 90.72 kg

DRUGS (2)
  1. XELJANZ [Suspect]
     Active Substance: TOFACITINIB CITRATE
     Indication: RECTAL HAEMORRHAGE
  2. XELJANZ [Suspect]
     Active Substance: TOFACITINIB CITRATE
     Indication: COLITIS ULCERATIVE
     Dosage: 5 MG, TWICE DAILY (5 MG IN MORNING AND 5 MG IN THE EVENING)
     Dates: end: 20200520

REACTIONS (3)
  - Pruritus [Unknown]
  - Rash [Unknown]
  - Burning sensation [Unknown]

NARRATIVE: CASE EVENT DATE: 20200522
